FAERS Safety Report 10012143 (Version 4)
Quarter: 2014Q3

REPORT INFORMATION
  Report Type: Spontaneous
  Country: US (occurrence: US)
  Receive Date: 20140314
  Receipt Date: 20140904
  Transmission Date: 20150326
  Serious: Yes (Hospitalization, Other)
  Sender: FDA-Public Use
  Company Number: PHHY2013US119505

PATIENT
  Age: 54 Year
  Sex: Male

DRUGS (17)
  1. BACLOFEN INTRATHECAL [Suspect]
     Active Substance: BACLOFEN
     Dosage: 999 UG, DAILY
     Route: 037
  2. HYDROCHLOROTHIAZIDE. [Suspect]
     Active Substance: HYDROCHLOROTHIAZIDE
     Dosage: 25 MG, DAILY
     Route: 048
  3. BACLOFEN. [Suspect]
     Active Substance: BACLOFEN
     Dosage: 180 MG, PER DAY
     Route: 048
  4. TAMSULOSIN [Suspect]
     Active Substance: TAMSULOSIN
     Dosage: 0.4 MG, DAILY
     Route: 048
  5. SIMVASTATIN. [Suspect]
     Active Substance: SIMVASTATIN
     Dosage: 40 MG, DAILY
     Route: 048
  6. FUROSEMIDE. [Suspect]
     Active Substance: FUROSEMIDE
     Dosage: 40 MG, DAILY
     Route: 048
  7. DANTROLENE [Suspect]
     Active Substance: DANTROLENE
     Dosage: 25 MG, BID
     Route: 048
  8. BACLOFEN INTRATHECAL [Suspect]
     Active Substance: BACLOFEN
     Indication: MUSCLE SPASTICITY
     Dosage: 999 UG, DAILY
     Route: 037
     Dates: start: 20060301
  9. BACLOFEN INTRATHECAL [Suspect]
     Active Substance: BACLOFEN
     Dosage: UNK UKN, UNK, OVERDOSE DUE TO PROGRAMMING ERROR
     Route: 037
     Dates: start: 20140203
  10. SEROQUEL [Suspect]
     Active Substance: QUETIAPINE FUMARATE
     Dosage: 50 MG, QHS
     Route: 048
  11. CYMBALTA [Suspect]
     Active Substance: DULOXETINE HYDROCHLORIDE
     Dosage: 60 MG, DAILY
     Route: 048
  12. BISACODYL. [Suspect]
     Active Substance: BISACODYL
     Dosage: 10 MG, PRN
     Route: 048
  13. HYDROMORPHONE [Suspect]
     Active Substance: HYDROMORPHONE
     Dosage: 4 MG, UNK (EVERY 3 HOURS AS NEEDED)
     Route: 048
  14. VALIUM [Suspect]
     Active Substance: DIAZEPAM
     Dosage: 5 MG, UNK (BID AS NEEDED)
     Route: 048
  15. BACLOFEN INTRATHECAL [Suspect]
     Active Substance: BACLOFEN
     Dosage: 1500 UG/DAY
     Route: 037
  16. BACLOFEN. [Suspect]
     Active Substance: BACLOFEN
     Dosage: 150 MG, PER DAY
     Route: 048
  17. POTASSIUM CHLORIDE. [Suspect]
     Active Substance: POTASSIUM CHLORIDE
     Dosage: 40 MEQ, DAILY
     Route: 048

REACTIONS (12)
  - Therapeutic response decreased [Recovering/Resolving]
  - Muscle tightness [Unknown]
  - Fall [Unknown]
  - Mental status changes [Recovering/Resolving]
  - Muscle spasms [Unknown]
  - Overdose [Recovering/Resolving]
  - Pain [Recovering/Resolving]
  - Incorrect dose administered [Recovering/Resolving]
  - Respiratory depression [Recovering/Resolving]
  - Tremor [Unknown]
  - Lethargy [Recovering/Resolving]
  - Muscle spasticity [Recovering/Resolving]

NARRATIVE: CASE EVENT DATE: 20140203
